FAERS Safety Report 7913350-9 (Version None)
Quarter: 2011Q4

REPORT INFORMATION
  Report Type: 
  Country: None (occurrence: None)
  Receive Date: 20111114
  Receipt Date: 20111102
  Transmission Date: 20120403
  Serious: Yes (Death)
  Sender: FDA-Public Use
  Company Number: IE-GILEAD-2011-0046495

PATIENT
  Sex: Male

DRUGS (4)
  1. TMC278 (RILPIVIRINE) [Concomitant]
     Dosage: 1 DF, QD
     Route: 048
     Dates: start: 20110331
  2. TMC278 (RILPIVIRINE) [Concomitant]
     Indication: HIV INFECTION
     Dosage: 1 DF, QD
     Route: 048
     Dates: start: 20090226, end: 20110330
  3. CICLOPIROX [Concomitant]
     Indication: SEBORRHOEIC DERMATITIS
     Dosage: 2 DF, Q1WK
  4. EMTRICITABINE/TENOFOVIR DISOPROXIL FUMARATE [Suspect]
     Indication: HIV INFECTION
     Dosage: 1 DF, QD
     Dates: start: 20110331

REACTIONS (1)
  - DEATH [None]
